FAERS Safety Report 5471542-5 (Version None)
Quarter: 2007Q3

REPORT INFORMATION
  Report Type: 
  Country: None (occurrence: None)
  Receive Date: 20070928
  Receipt Date: 20070103
  Transmission Date: 20080115
  Serious: No
  Sender: FDA-Public Use
  Company Number: US-BRISTOL-MYERS SQUIBB COMPANY-13630686

PATIENT
  Sex: Female

DRUGS (1)
  1. DEFINITY [Suspect]
     Indication: STRESS ECHOCARDIOGRAM
     Dosage: RECEIVED 3CC OF A DILUTED 10CC SYRINGE
     Dates: start: 20060727

REACTIONS (3)
  - DYSPNOEA [None]
  - FLUSHING [None]
  - NAUSEA [None]
